FAERS Safety Report 7260230-0 (Version None)
Quarter: 2011Q1

REPORT INFORMATION
  Report Type: 
  Country: None (occurrence: None)
  Receive Date: 20110130
  Receipt Date: 20100903
  Transmission Date: 20110831
  Serious: No
  Sender: FDA-Public Use
  Company Number: US-ABBOTT-10P-163-0669889-00

PATIENT
  Sex: Female
  Weight: 81.72 kg

DRUGS (3)
  1. PREDNISONE [Concomitant]
     Indication: PRURITUS
  2. PREDNISONE [Concomitant]
     Indication: RASH ERYTHEMATOUS
     Route: 048
     Dates: start: 20100820
  3. HUMIRA [Suspect]
     Indication: PSORIASIS
     Route: 058
     Dates: start: 20100701

REACTIONS (4)
  - WRONG TECHNIQUE IN DRUG USAGE PROCESS [None]
  - ACTINIC KERATOSIS [None]
  - INJECTION SITE PAIN [None]
  - INCORRECT ROUTE OF DRUG ADMINISTRATION [None]
